FAERS Safety Report 10646338 (Version 1)
Quarter: 2014Q4

REPORT INFORMATION
  Report Type: Spontaneous
  Country: US (occurrence: None)
  Receive Date: 20141203
  Receipt Date: 20141203
  Transmission Date: 20150529
  Serious: No
  Sender: FDA-Public Use
  Company Number: 1405USA005192

PATIENT
  Sex: Male

DRUGS (1)
  1. GRASTEK [Suspect]
     Active Substance: PHLEUM PRATENSE POLLEN
     Route: 060

REACTIONS (3)
  - Tongue pruritus [None]
  - Enlarged uvula [None]
  - Pharyngeal hypoaesthesia [None]
